FAERS Safety Report 11995036 (Version 2)
Quarter: 2019Q4

REPORT INFORMATION
  Report Type: Spontaneous
  Country: US (occurrence: US)
  Receive Date: 20160203
  Receipt Date: 20191213
  Transmission Date: 20200122
  Serious: No
  Sender: FDA-Public Use
  Company Number: US-UCBSA-2015033142

PATIENT
  Sex: Female

DRUGS (1)
  1. KEPPRA XR [Suspect]
     Active Substance: LEVETIRACETAM
     Indication: SEIZURE
     Dosage: 750, 2 TABLETS DAILY (DOSE UNIT NOT MENTIONED)

REACTIONS (3)
  - Influenza like illness [Unknown]
  - Asthenia [Not Recovered/Not Resolved]
  - Dizziness [Not Recovered/Not Resolved]
